FAERS Safety Report 16003401 (Version 2)
Quarter: 2019Q1

REPORT INFORMATION
  Report Type: Spontaneous
  Country: DE (occurrence: DE)
  Receive Date: 20190225
  Receipt Date: 20190318
  Transmission Date: 20190418
  Serious: Yes (Death, Other)
  Sender: FDA-Public Use
  Company Number: DE-TORRENT-00013389

PATIENT
  Age: 63 Year
  Sex: Female
  Weight: 50 kg

DRUGS (1)
  1. MOXIFLOXACIN. [Suspect]
     Active Substance: MOXIFLOXACIN
     Indication: PRODUCT USED FOR UNKNOWN INDICATION
     Dosage: 400MG
     Route: 048
     Dates: start: 20170315, end: 20170322

REACTIONS (9)
  - Myalgia [Fatal]
  - Depression [Fatal]
  - Hypophagia [Fatal]
  - Arthralgia [Fatal]
  - Apathy [Fatal]
  - Pyrexia [Fatal]
  - Dysphagia [Fatal]
  - Weight decreased [Fatal]
  - Thrombocytopenia [Fatal]

NARRATIVE: CASE EVENT DATE: 20170401
